FAERS Safety Report 4715249-8 (Version None)
Quarter: 2005Q3

REPORT INFORMATION
  Report Type: 
  Country: None (occurrence: None)
  Receive Date: 20050715
  Receipt Date: 20050713
  Transmission Date: 20060218
  Serious: Yes (Death)
  Sender: FDA-Public Use
  Company Number: JP-SANOFI-SYNTHELABO-F01200501237

PATIENT
  Sex: Female
  Weight: 41 kg

DRUGS (4)
  1. OXALIPLATIN [Suspect]
     Indication: COLON CANCER
     Dosage: 106 MG/BODY = 86.2 MG/M2, DR
     Route: 042
     Dates: start: 20050520, end: 20050520
  2. FLUOROURACIL [Suspect]
     Dosage: 500MG/BODY = 406.5 MG/M2 IV BOLUS AND 750 MG/BODY = 609.8 MG/M2 IV 22 HOURS CONTINUOUS INFUSION, Q2W
     Route: 042
     Dates: start: 20050520, end: 20050521
  3. CALCIUM LEVOFOLINATE [Suspect]
     Dosage: 125MG/BODY = 101.6 MG/M2, DR
     Route: 042
     Dates: start: 20050520, end: 20050521
  4. IRINOTECAN HYDROCHLORIDE [Concomitant]
     Indication: COLON CANCER
     Dates: end: 20050509

REACTIONS (3)
  - DEPRESSED LEVEL OF CONSCIOUSNESS [None]
  - HAEMOGLOBIN DECREASED [None]
  - UPPER GASTROINTESTINAL HAEMORRHAGE [None]
